FAERS Safety Report 7770957-X (Version None)
Quarter: 2011Q3

REPORT INFORMATION
  Report Type: 
  Country: None (occurrence: None)
  Receive Date: 20110922
  Receipt Date: 20110112
  Transmission Date: 20111222
  Serious: No
  Sender: FDA-Public Use
  Company Number: US-ASTRAZENECA-2011SE02051

PATIENT
  Age: 17933 Day
  Sex: Female

DRUGS (5)
  1. SEROQUEL XR [Suspect]
     Indication: ANXIETY
     Route: 048
     Dates: start: 20100601
  2. ADVIL LIQUI-GELS [Concomitant]
  3. SEROQUEL XR [Suspect]
     Indication: BIPOLAR DISORDER
     Route: 048
     Dates: start: 20100601
  4. CELEXA [Concomitant]
  5. SEROQUEL XR [Suspect]
     Indication: SLEEP DISORDER
     Route: 048
     Dates: start: 20100601

REACTIONS (2)
  - BACK PAIN [None]
  - TEMPERATURE INTOLERANCE [None]
